FAERS Safety Report 8804627 (Version 3)
Quarter: 2013Q1

REPORT INFORMATION
  Report Type: Spontaneous
  Country: US (occurrence: US)
  Receive Date: 20120924
  Receipt Date: 20130205
  Transmission Date: 20140127
  Serious: Yes (Hospitalization, Other)
  Sender: FDA-Public Use
  Company Number: US-009507513-1103USA00908

PATIENT
  Sex: Female

DRUGS (2)
  1. FOSAMAX [Suspect]
     Indication: OSTEOPOROSIS
     Dosage: 70 MG, UNK
     Route: 048
     Dates: start: 20020101, end: 20100615
  2. ALENDRONATE SODIUM [Suspect]
     Indication: OSTEOPOROSIS
     Dosage: 70 MG, UNK
     Route: 048
     Dates: start: 20080212, end: 20100615

REACTIONS (36)
  - Intramedullary rod insertion [Unknown]
  - Rotator cuff repair [Unknown]
  - Cerebrovascular accident [Unknown]
  - Fall [Unknown]
  - Cervical vertebral fracture [Unknown]
  - Renal failure [Unknown]
  - Femur fracture [Unknown]
  - Bunion operation [Unknown]
  - Exostosis [Unknown]
  - Hypertension [Unknown]
  - Hyperlipidaemia [Unknown]
  - Osteoarthritis [Unknown]
  - Lumbar spinal stenosis [Unknown]
  - Intervertebral disc degeneration [Unknown]
  - Night sweats [Unknown]
  - Sinusitis [Recovering/Resolving]
  - Rhinitis allergic [Unknown]
  - Urinary tract infection [Unknown]
  - Impaired healing [Unknown]
  - Coronary artery disease [Unknown]
  - Fall [Unknown]
  - Muscle strain [Unknown]
  - Vitamin D deficiency [Unknown]
  - Hyperglycaemia [Unknown]
  - Fall [Unknown]
  - Chondrocalcinosis [Unknown]
  - Hot flush [Unknown]
  - Postmenopause [Unknown]
  - Upper limb fracture [Unknown]
  - Arthritis [Unknown]
  - Urinary tract infection pseudomonal [Unknown]
  - Fall [Unknown]
  - Pain in extremity [Unknown]
  - Pain in extremity [Unknown]
  - Back pain [Unknown]
  - Oedema peripheral [Unknown]
